FAERS Safety Report 9687935 (Version 2)
Quarter: 2014Q1

REPORT INFORMATION
  Report Type: Spontaneous
  Country: DE (occurrence: None)
  Receive Date: 20131112
  Receipt Date: 20140127
  Transmission Date: 20141002
  Serious: Yes (Other)
  Sender: FDA-Public Use
  Company Number: 2013DE0418

PATIENT
  Age: 2 Year
  Sex: Male

DRUGS (1)
  1. ANAKINRA [Suspect]
     Indication: JUVENILE IDIOPATHIC ARTHRITIS
     Dosage: 4 MG/K (4 MG/K,1 IN 1 D)

REACTIONS (2)
  - Histiocytosis haematophagic [None]
  - Human herpesvirus 6 infection [None]
